FAERS Safety Report 4973994-3 (Version None)
Quarter: 2006Q2

REPORT INFORMATION
  Report Type: 
  Country: None (occurrence: None)
  Receive Date: 20060417
  Receipt Date: 20060123
  Transmission Date: 20061013
  Serious: Yes (Death)
  Sender: FDA-Public Use
  Company Number: US-BRISTOL-MYERS SQUIBB COMPANY-13256383

PATIENT
  Age: 56 Year
  Sex: Male
  Weight: 82 kg

DRUGS (3)
  1. ABILIFY [Suspect]
     Indication: SCHIZOPHRENIA, PARANOID TYPE
     Dosage: 15 MG DAILY INITIATED 27-JUL-2005, THEN REDUCED TO 10 MG DAILY ON 01-NOV-2005, CONTINUED TILL DEATH.
     Route: 048
     Dates: start: 20050727, end: 20060112
  2. XANAX [Concomitant]
     Dosage: 0.5 MG 1 ORAALLY EVERY MORNING AND 2 AT BEDTIME.
     Route: 048
  3. TRAZODONE HCL [Concomitant]
     Dosage: GIVEN AT BEDTIME

REACTIONS (2)
  - MYOCARDIAL INFARCTION [None]
  - SOMNOLENCE [None]
